FAERS Safety Report 4767342-1 (Version None)
Quarter: 2005Q3

REPORT INFORMATION
  Report Type: 
  Country: None (occurrence: None)
  Receive Date: 20050909
  Receipt Date: 20050825
  Transmission Date: 20060218
  Serious: Yes (Other)
  Sender: FDA-Public Use
  Company Number: S05-USA-04140-01

PATIENT
  Age: 25 Year
  Sex: Female

DRUGS (4)
  1. CITALOPRAM [Suspect]
     Indication: ANXIETY
     Dosage: 20 MG QD PO
     Route: 048
     Dates: start: 20050601, end: 20050824
  2. CITALOPRAM [Suspect]
     Indication: DEPRESSION
     Dosage: 20 MG QD PO
     Route: 048
     Dates: start: 20050601, end: 20050824
  3. DEPO-PROVERA [Suspect]
     Indication: CONTRACEPTION
  4. XANAX [Concomitant]

REACTIONS (5)
  - ABASIA [None]
  - ARTHRALGIA [None]
  - BONE PAIN [None]
  - MYOFASCIAL PAIN SYNDROME [None]
  - NAUSEA [None]
